FAERS Safety Report 16561620 (Version 2)
Quarter: 2019Q3

REPORT INFORMATION
  Report Type: Spontaneous
  Country: US (occurrence: US)
  Receive Date: 20190711
  Receipt Date: 20190822
  Transmission Date: 20191004
  Serious: No
  Sender: FDA-Public Use
  Company Number: US-JNJFOC-20190714749

PATIENT
  Sex: Female
  Weight: 61.29 kg

DRUGS (1)
  1. ORTHO TRI CYCLEN LO [Suspect]
     Active Substance: ETHINYL ESTRADIOL\NORGESTIMATE
     Indication: ORAL CONTRACEPTION
     Route: 048

REACTIONS (4)
  - Headache [Recovered/Resolved]
  - Menstruation irregular [Unknown]
  - Drug ineffective [Unknown]
  - Malaise [Unknown]
